FAERS Safety Report 11583509 (Version 1)
Quarter: 2015Q3

REPORT INFORMATION
  Report Type: Spontaneous
  Country: US (occurrence: None)
  Receive Date: 20150930
  Receipt Date: 20150930
  Transmission Date: 20151125
  Serious: Yes (Death)
  Sender: FDA-Public Use
  Company Number: None

PATIENT
  Age: 46 Year
  Sex: Female
  Weight: 89.3 kg

DRUGS (1)
  1. AFATINIB [Suspect]
     Active Substance: AFATINIB
     Dates: end: 20150924

REACTIONS (3)
  - Dyspnoea [None]
  - Wheezing [None]
  - Staphylococcal infection [None]

NARRATIVE: CASE EVENT DATE: 20150924
